FAERS Safety Report 7989294 (Version 3)
Quarter: 2013Q3

REPORT INFORMATION
  Report Type: Spontaneous
  Country: FR (occurrence: FR)
  Receive Date: 20110614
  Receipt Date: 20130812
  Transmission Date: 20140515
  Serious: Yes (Hospitalization)
  Sender: FDA-Public Use
  Company Number: FR-BAYER-2011-048094

PATIENT
  Age: 64 Year
  Sex: Female

DRUGS (5)
  1. CIFLOX [Suspect]
     Dosage: 500 MG, BID
     Route: 048
     Dates: start: 20110330, end: 20110403
  2. TARGOCID [Suspect]
     Dosage: 400 MG, BID
     Route: 042
     Dates: start: 20110304, end: 20110305
  3. TARGOCID [Suspect]
     Dosage: 400 MG, QD
     Route: 042
     Dates: start: 20110305, end: 20110407
  4. TAZOCILLINE [Suspect]
     Dosage: 4 G, TID
     Route: 042
     Dates: start: 20110304, end: 20110406
  5. CELLCEPT [Concomitant]
     Dosage: 500 MG, BID
     Route: 048

REACTIONS (3)
  - Drug reaction with eosinophilia and systemic symptoms [Recovered/Resolved]
  - Drug reaction with eosinophilia and systemic symptoms [Recovered/Resolved]
  - Skin test positive [Unknown]
